FAERS Safety Report 6613536-X (Version None)
Quarter: 2010Q1

REPORT INFORMATION
  Report Type: 
  Country: None (occurrence: None)
  Receive Date: 20100225
  Receipt Date: 20100215
  Transmission Date: 20100710
  Serious: Yes (Other)
  Sender: FDA-Public Use
  Company Number: 1000011984

PATIENT
  Age: 35 Year
  Sex: Female

DRUGS (5)
  1. ESCITALOPRAM OXALATE [Suspect]
     Dosage: 40 MG (40 MG, 1 IN 1 D); 5 MG (5 MG,1 IN 1 D)
     Dates: start: 20071120, end: 20080206
  2. ESCITALOPRAM OXALATE [Suspect]
     Dosage: 40 MG (40 MG, 1 IN 1 D); 5 MG (5 MG,1 IN 1 D)
     Dates: start: 20080213
  3. EDRONAX [Suspect]
     Dosage: 12 MG (12 MG, 1 IN 1 D)
     Dates: start: 20071211, end: 20080206
  4. ABILIFY [Suspect]
     Dosage: 1 0 MG (10 MG, 1 IN 1 D)
     Dates: start: 20071120, end: 20080206
  5. SEROQUEL [Suspect]
     Dosage: 25 MG (25 MG, 1 IN 1 D)
     Dates: start: 20070920, end: 20080206

REACTIONS (8)
  - ALANINE AMINOTRANSFERASE INCREASED [None]
  - ASPARTATE AMINOTRANSFERASE INCREASED [None]
  - GAMMA-GLUTAMYLTRANSFERASE INCREASED [None]
  - HEADACHE [None]
  - HEPATIC FUNCTION ABNORMAL [None]
  - OVERDOSE [None]
  - TRANSAMINASES INCREASED [None]
  - VOMITING [None]
